FAERS Safety Report 6358309-0 (Version None)
Quarter: 2009Q3

REPORT INFORMATION
  Report Type: 
  Country: None (occurrence: None)
  Receive Date: 20090916
  Receipt Date: 20090907
  Transmission Date: 20100115
  Serious: Yes (Other)
  Sender: FDA-Public Use
  Company Number: PHHY2009PT37955

PATIENT
  Sex: Male

DRUGS (1)
  1. ZOMETA [Suspect]
     Indication: PROSTATE CANCER
     Dosage: UNK
     Dates: start: 20080101

REACTIONS (4)
  - DENTAL OPERATION [None]
  - OSTEONECROSIS [None]
  - PAIN IN JAW [None]
  - WOUND SECRETION [None]
